FAERS Safety Report 4673640-2 (Version None)
Quarter: 2005Q2

REPORT INFORMATION
  Report Type: 
  Country: None (occurrence: None)
  Receive Date: 20050525
  Receipt Date: 20050516
  Transmission Date: 20051028
  Serious: Yes (Hospitalization)
  Sender: FDA-Public Use
  Company Number: 2005UW07528

PATIENT
  Age: 74 Year
  Sex: Female

DRUGS (14)
  1. IRESSA [Suspect]
     Indication: PANCREATIC CARCINOMA
     Route: 048
     Dates: start: 20041126, end: 20050506
  2. DOCETAXEL [Suspect]
     Indication: PANCREATIC CARCINOMA
     Route: 042
     Dates: start: 20041126, end: 20050422
  3. LANTUS [Concomitant]
  4. ASPIRIN [Concomitant]
  5. FOLIC ACID [Concomitant]
     Route: 048
  6. MULTI-VITAMIN [Concomitant]
     Route: 048
  7. CALCIUM GLUCONATE [Concomitant]
     Route: 048
  8. MICRO-K [Concomitant]
     Route: 048
  9. XALATAN [Concomitant]
     Route: 031
  10. FERRLECIT [Concomitant]
     Route: 042
  11. ARANESP [Concomitant]
  12. ATENOLOL [Concomitant]
     Route: 048
  13. NEULASTA [Concomitant]
     Dates: end: 20050428
  14. LASIX [Concomitant]

REACTIONS (1)
  - CELLULITIS [None]
